FAERS Safety Report 14668173 (Version 1)
Quarter: 2018Q1

REPORT INFORMATION
  Report Type: Spontaneous
  Country: US (occurrence: US)
  Receive Date: 20180322
  Receipt Date: 20180322
  Transmission Date: 20180509
  Serious: No
  Sender: FDA-Public Use
  Company Number: US-TEVA-678007USA

PATIENT

DRUGS (1)
  1. CABERGOLINE. [Suspect]
     Active Substance: CABERGOLINE

REACTIONS (2)
  - Drug prescribing error [Unknown]
  - Drug dispensing error [Unknown]
